FAERS Safety Report 5060338-4 (Version None)
Quarter: 2006Q3

REPORT INFORMATION
  Report Type: 
  Country: None (occurrence: None)
  Receive Date: 20060718
  Receipt Date: 20060629
  Transmission Date: 20061208
  Serious: Yes (Hospitalization)
  Sender: FDA-Public Use
  Company Number: US200603004918

PATIENT
  Age: 42 Year
  Sex: Male
  Weight: 85.3 kg

DRUGS (4)
  1. ZYPREXA [Suspect]
     Dosage: 15 MG, DAILY (1/D)
     Dates: start: 19990901
  2. SERTRALINE [Concomitant]
  3. ATENOLOL [Concomitant]
  4. TOLAZAMIDE (TOLAZAMIDE) [Concomitant]

REACTIONS (10)
  - ANGINA PECTORIS [None]
  - BLOOD TRIGLYCERIDES INCREASED [None]
  - DIABETES MELLITUS NON-INSULIN-DEPENDENT [None]
  - GLYCOSURIA [None]
  - HYPERGLYCAEMIA [None]
  - METABOLIC DISORDER [None]
  - MYOCARDIAL ISCHAEMIA [None]
  - POLYDIPSIA [None]
  - POLYURIA [None]
  - VISION BLURRED [None]
